FAERS Safety Report 24097708 (Version 1)
Quarter: 2024Q3

REPORT INFORMATION
  Report Type: Report from Study
  Country: DE (occurrence: DE)
  Receive Date: 20240716
  Receipt Date: 20240716
  Transmission Date: 20241016
  Serious: Yes (Hospitalization)
  Sender: MYLAN
  Company Number: None

PATIENT
  Age: 78 Year
  Sex: Male
  Weight: 84 kg

DRUGS (27)
  1. GEMCITABINE [Suspect]
     Active Substance: GEMCITABINE
     Indication: Pancreatic carcinoma metastatic
     Dosage: 2050 MILLIGRAM, QD (1000 MG/M2)
     Route: 042
     Dates: start: 20170404, end: 20170418
  2. ABRAXANE [Suspect]
     Active Substance: PACLITAXEL
     Indication: Pancreatic carcinoma metastatic
     Dosage: 256 MILLIGRAM, QD (125 MG/M2)
     Route: 042
     Dates: start: 20170307, end: 20170418
  3. PANTOPRAZOLE SODIUM [Concomitant]
     Active Substance: PANTOPRAZOLE SODIUM
     Indication: Constipation
     Dosage: 40 MILLIGRAM, QD
     Route: 048
  4. PANTOPRAZOLE SODIUM [Concomitant]
     Active Substance: PANTOPRAZOLE SODIUM
     Dosage: 80 MILLIGRAM, QD
     Route: 048
  5. HYDROMORPHONE [Concomitant]
     Active Substance: HYDROMORPHONE
     Dosage: 40 MILLIGRAM, QD
     Route: 048
  6. HYDROMORPHONE [Concomitant]
     Active Substance: HYDROMORPHONE
     Dosage: 3 MILLIGRAM, QD
     Route: 048
  7. HYDROMORPHONE [Concomitant]
     Active Substance: HYDROMORPHONE
     Dosage: 2 IN THE MORNING 1 IN THE AFTERNOON AND 2.4 IN THE EVENING
     Route: 048
  8. HYDROMORPHONE [Concomitant]
     Active Substance: HYDROMORPHONE
     Dosage: 2 DOSAGE FORM, QD (REDUCED FROM 2X24 MG)
     Route: 048
     Dates: start: 20170214
  9. SODIUM CHLORIDE [Concomitant]
     Active Substance: SODIUM CHLORIDE
     Indication: Product used for unknown indication
     Dosage: 500 MILLILITER
     Route: 042
  10. CLOPIDOGREL [Concomitant]
     Active Substance: CLOPIDOGREL BISULFATE
     Indication: Product used for unknown indication
     Dosage: 75 MILLIGRAM
     Route: 048
  11. CLOPIDOGREL [Concomitant]
     Active Substance: CLOPIDOGREL BISULFATE
     Dosage: 76 MILLIGRAM, QD
     Route: 048
  12. DOMPERDONE [Concomitant]
     Indication: Product used for unknown indication
     Dosage: 30 MILLIGRAM, QD
     Route: 048
  13. Novalgin [Concomitant]
     Dosage: 4000 MILLIGRAM, QD
     Route: 048
  14. Novalgin [Concomitant]
     Indication: Product used for unknown indication
     Dosage: 120 DROPS, QD
     Route: 048
  15. MCP [Concomitant]
     Active Substance: METOCLOPRAMIDE HYDROCHLORIDE
     Dosage: 30 MILLIGRAM, QD
     Route: 048
     Dates: start: 20170404, end: 20170404
  16. MCP [Concomitant]
     Active Substance: METOCLOPRAMIDE HYDROCHLORIDE
     Dosage: 30 MILLIGRAM
     Route: 048
     Dates: start: 20170411, end: 20170411
  17. MCP [Concomitant]
     Active Substance: METOCLOPRAMIDE HYDROCHLORIDE
     Dosage: 30 MILLIGRAM, QD
     Route: 048
     Dates: start: 20170418, end: 20170418
  18. MOVICOL [Concomitant]
     Active Substance: POLYETHYLENE GLYCOL 3350\POTASSIUM CHLORIDE\SODIUM BICARBONATE\SODIUM CHLORIDE
     Indication: Constipation
     Dosage: 7.5 MILLIGRAM, QD
     Route: 048
  19. HALOPERIDOL [Concomitant]
     Active Substance: HALOPERIDOL
     Indication: Constipation
     Dosage: 15 MILLIGRAM, QD
     Route: 048
  20. ABSTRAL [Concomitant]
     Active Substance: FENTANYL CITRATE
     Indication: Pain
     Dosage: 4000 MICROGRAM, PRN UP TO 4/DAY
     Route: 060
  21. ABSTRAL [Concomitant]
     Active Substance: FENTANYL CITRATE
     Dosage: 800 MICROGRAM, PRN UP TO 4/DAY
     Route: 060
  22. ZOFRAN [Concomitant]
     Active Substance: ONDANSETRON HYDROCHLORIDE
     Indication: Nausea
     Dosage: 8 MILLIGRAM
     Route: 048
     Dates: start: 20170404, end: 20170418
  23. ZOFRAN [Concomitant]
     Active Substance: ONDANSETRON HYDROCHLORIDE
     Dosage: 16 MILLIGRAM, QD
     Route: 048
     Dates: start: 20170404, end: 20170418
  24. PRAMIPEXOLE [Concomitant]
     Active Substance: PRAMIPEXOLE\PRAMIPEXOLE DIHYDROCHLORIDE
     Indication: Product used for unknown indication
     Dosage: 1.57 MILLIGRAM, QD (REDUCED FROM 2XDAILY)
     Route: 048
     Dates: start: 20170413
  25. METOCLOPRAMIDE [Concomitant]
     Active Substance: METOCLOPRAMIDE
     Indication: Nausea
     Dosage: 30 MILLIGRAM, QD
     Route: 048
     Dates: start: 20170404, end: 20170418
  26. ZOPICLONE [Concomitant]
     Active Substance: ZOPICLONE
     Indication: Constipation
     Dosage: 7.5 MILLIGRAM, QD
     Route: 048
  27. DIMENHYDRINATE [Concomitant]
     Active Substance: DIMENHYDRINATE
     Indication: Nausea
     Dosage: 150 MILLIGRAM, 2-3 DAILY
     Route: 048

REACTIONS (7)
  - Abdominal pain [Recovered/Resolved]
  - C-reactive protein increased [Not Recovered/Not Resolved]
  - Neutropenia [Recovered/Resolved]
  - Infection [Recovered/Resolved]
  - Leukopenia [Recovered/Resolved]
  - Thrombocytopenia [Recovered/Resolved]
  - Device related infection [Recovered/Resolved]

NARRATIVE: CASE EVENT DATE: 20170301
